FAERS Safety Report 9199891 (Version 1)
Quarter: 2013Q1

REPORT INFORMATION
  Report Type: Report from Study
  Country: FR (occurrence: FR)
  Receive Date: 20130329
  Receipt Date: 20130329
  Transmission Date: 20140127
  Serious: Yes (Hospitalization)
  Sender: FDA-Public Use
  Company Number: FR-BAXTER-2013BAX011192

PATIENT
  Age: 58 Year
  Sex: Male
  Weight: 95 kg

DRUGS (12)
  1. ENDOXAN 2000 MG, LYOPHILISAT POUR SOLUTION INJECTABLE [Suspect]
     Indication: B-CELL LYMPHOMA
     Route: 065
  2. RHUPH20/RITUXIMAB [Suspect]
     Indication: B-CELL LYMPHOMA
     Route: 058
     Dates: start: 20121115
  3. RHUPH20 [Suspect]
     Route: 058
     Dates: start: 20121227
  4. DOXORUBICIN [Suspect]
     Indication: B-CELL LYMPHOMA
     Route: 065
  5. VINCRISTINE [Suspect]
     Indication: B-CELL LYMPHOMA
     Route: 065
  6. PREDNISONE [Suspect]
     Indication: B-CELL LYMPHOMA
     Route: 065
  7. PARACETAMOL [Concomitant]
     Indication: PAIN PROPHYLAXIS
     Route: 065
     Dates: start: 20121115
  8. POLARAMINE [Concomitant]
     Indication: ALLERGY PROPHYLAXIS
     Route: 065
     Dates: start: 20121115
  9. UROMITEXAN [Concomitant]
     Indication: CYSTITIS HAEMORRHAGIC
     Route: 065
     Dates: start: 20121115
  10. ONDANSETRON HYDROCHLORIDE [Concomitant]
     Indication: NAUSEA
     Route: 065
     Dates: start: 20121115
  11. LENOGRASTIM [Concomitant]
     Indication: NEUTROPENIA
     Route: 065
     Dates: start: 20121217
  12. OMEPRAZOLE SODIUM [Concomitant]
     Indication: PROPHYLAXIS AGAINST GASTROINTESTINAL ULCER
     Route: 065
     Dates: start: 20121210

REACTIONS (1)
  - Mouth ulceration [Not Recovered/Not Resolved]
